FAERS Safety Report 9776480 (Version 2)
Quarter: 2013Q4

REPORT INFORMATION
  Report Type: Spontaneous
  Country: US (occurrence: US)
  Receive Date: 20131220
  Receipt Date: 20131227
  Transmission Date: 20140711
  Serious: Yes (Hospitalization)
  Sender: FDA-Public Use
  Company Number: US-ABBVIE-13P-163-1179832-00

PATIENT
  Age: 61 Year
  Sex: Male
  Weight: 123.49 kg

DRUGS (8)
  1. HUMIRA [Suspect]
     Indication: PSORIASIS
     Route: 058
     Dates: start: 2012, end: 201304
  2. HUMIRA [Suspect]
     Route: 058
     Dates: start: 20131116
  3. ASPIRIN [Concomitant]
     Indication: ANTICOAGULANT THERAPY
  4. CRESTOR [Concomitant]
     Indication: BLOOD CHOLESTEROL INCREASED
  5. DIOVAN [Concomitant]
     Indication: HYPERTENSION
  6. METOPROLOL [Concomitant]
     Indication: HYPERTENSION
  7. ZOLPIDEM [Concomitant]
     Indication: INSOMNIA
  8. MULTIVITAMIN [Concomitant]
     Indication: PRODUCT USED FOR UNKNOWN INDICATION

REACTIONS (9)
  - Osteoarthritis [Recovered/Resolved]
  - Arthritis [Recovered/Resolved with Sequelae]
  - Cellulitis [Unknown]
  - Myocardial infarction [Recovered/Resolved]
  - Abdominal pain [Recovered/Resolved]
  - Hot flush [Recovered/Resolved]
  - Feeling cold [Recovered/Resolved]
  - Blood viscosity increased [Recovered/Resolved]
  - Blood pressure increased [Recovered/Resolved]
